FAERS Safety Report 5983690-1 (Version None)
Quarter: 2008Q4

REPORT INFORMATION
  Report Type: 
  Country: None (occurrence: None)
  Receive Date: 20081208
  Receipt Date: 20080307
  Transmission Date: 20090506
  Serious: No
  Sender: FDA-Public Use
  Company Number: US-AMGEN-KDL261471

PATIENT
  Sex: Female

DRUGS (4)
  1. ENBREL [Suspect]
     Indication: RHEUMATOID ARTHRITIS
     Route: 058
     Dates: start: 20080107
  2. METHOTREXATE [Concomitant]
     Route: 058
     Dates: start: 19980101
  3. GLIPIZIDE [Concomitant]
     Dates: start: 20000101
  4. GLUCOPHAGE [Concomitant]
     Dates: start: 20020101

REACTIONS (6)
  - ABDOMINAL PAIN UPPER [None]
  - HEADACHE [None]
  - INJECTION SITE ERYTHEMA [None]
  - INJECTION SITE PAIN [None]
  - PARAESTHESIA [None]
  - RHEUMATOID ARTHRITIS [None]
